FAERS Safety Report 4320896-1 (Version None)
Quarter: 2004Q1

REPORT INFORMATION
  Report Type: 
  Country: None (occurrence: None)
  Receive Date: 20040322
  Receipt Date: 20040219
  Transmission Date: 20041129
  Serious: Yes (Hospitalization)
  Sender: FDA-Public Use
  Company Number: PHRM2004FR00955

PATIENT
  Age: 67 Year
  Sex: Female
  Weight: 63 kg

DRUGS (9)
  1. ZOMETA [Suspect]
     Indication: OSTEOPOROSIS
     Dosage: 4 MG, ONCE/SINGLE
     Route: 042
     Dates: start: 20040127, end: 20040127
  2. RIVOTRIL [Suspect]
     Dosage: 20 DROPS PER DAY
     Route: 048
     Dates: end: 20040204
  3. TOPALGIC ^HOUDE^ [Suspect]
     Dosage: 200 MG, BID
     Route: 048
     Dates: end: 20040203
  4. MOPRAL [Suspect]
     Dosage: 10 MG, QD
     Route: 048
     Dates: end: 20040202
  5. MODOPAR [Suspect]
     Indication: PARKINSON'S DISEASE
     Dosage: 562.5 MG PER DAY
     Dates: end: 20040203
  6. CALCIUM CARBONATE [Concomitant]
     Dosage: 2 DF DAILY
  7. DEROXAT [Concomitant]
     Indication: DEPRESSION
     Dosage: 2 DF DAILY
     Route: 048
  8. CORTANCYL [Concomitant]
     Dosage: 3 MG DAILY
  9. DAFALGAN [Concomitant]
     Dosage: 6 DF DAILY

REACTIONS (1)
  - DELUSION [None]
